FAERS Safety Report 8522094-4 (Version None)
Quarter: 2012Q3

REPORT INFORMATION
  Report Type: 
  Country: None (occurrence: None)
  Receive Date: 20120719
  Receipt Date: 20120704
  Transmission Date: 20120928
  Serious: Yes (Other)
  Sender: FDA-Public Use
  Company Number: DE-SANOFI-AVENTIS-2012SA047593

PATIENT

DRUGS (1)
  1. GLIMEPIRIDE [Suspect]
     Route: 048

REACTIONS (1)
  - BONE MARROW TOXICITY [None]
